FAERS Safety Report 7119590-3 (Version None)
Quarter: 2010Q4

REPORT INFORMATION
  Report Type: 
  Country: None (occurrence: None)
  Receive Date: 20101123
  Receipt Date: 20101115
  Transmission Date: 20110411
  Serious: Yes (Hospitalization)
  Sender: FDA-Public Use
  Company Number: US-CELGENEUS-163-21880-10112053

PATIENT
  Sex: Male

DRUGS (4)
  1. REVLIMID [Suspect]
     Indication: MULTIPLE MYELOMA
     Route: 048
     Dates: start: 20100601
  2. REVLIMID [Suspect]
     Route: 048
     Dates: start: 20100701
  3. REVLIMID [Suspect]
     Route: 048
     Dates: start: 20100801
  4. DIABETIC MEDICATION [Suspect]
     Route: 065

REACTIONS (5)
  - ADVERSE DRUG REACTION [None]
  - HYPOTENSION [None]
  - NONSPECIFIC REACTION [None]
  - RASH [None]
  - SYNCOPE [None]
